FAERS Safety Report 9393651 (Version 2)
Quarter: 2013Q3

REPORT INFORMATION
  Report Type: Report from Study
  Country: GR (occurrence: GR)
  Receive Date: 20130710
  Receipt Date: 20130719
  Transmission Date: 20140515
  Serious: Yes (Hospitalization)
  Sender: FDA-Public Use
  Company Number: GR-GLAXOSMITHKLINE-B0904777A

PATIENT
  Age: 78 Year
  Sex: Female

DRUGS (8)
  1. LAPATINIB [Suspect]
     Indication: GLIOMA
     Dosage: 1500MG PER DAY
     Route: 048
     Dates: start: 20130603
  2. SIMVASTATIN [Concomitant]
     Indication: HYPERLIPIDAEMIA
     Dosage: 20MG PER DAY
     Route: 048
  3. DIOVAN [Concomitant]
     Indication: HYPERTENSION
     Dosage: 160MG PER DAY
     Route: 048
  4. VASTAREL [Concomitant]
     Indication: CARDIOVASCULAR DISORDER
     Dosage: 35MG PER DAY
     Dates: end: 20130627
  5. FOLIC ACID [Concomitant]
     Indication: ANAEMIA
  6. DEXAMETHASONE [Concomitant]
     Indication: METASTASES TO CENTRAL NERVOUS SYSTEM
     Dates: start: 20130508, end: 20130627
  7. ALIMTA [Concomitant]
     Indication: LUNG NEOPLASM MALIGNANT
     Dates: start: 20130508, end: 20130508
  8. CISPLATIN [Concomitant]
     Indication: LUNG NEOPLASM MALIGNANT
     Dates: start: 20130508, end: 20130508

REACTIONS (1)
  - Infection [Recovered/Resolved]
